FAERS Safety Report 21769117 (Version 1)
Quarter: 2022Q4

REPORT INFORMATION
  Report Type: Spontaneous
  Country: US (occurrence: US)
  Receive Date: 20221222
  Receipt Date: 20221222
  Transmission Date: 20230113
  Serious: No
  Sender: FDA-Public Use
  Company Number: US-SA-SAC20221221001415

PATIENT
  Age: 83 Year
  Sex: Male

DRUGS (1)
  1. IRBESARTAN [Suspect]
     Active Substance: IRBESARTAN
     Dosage: UNK
     Route: 065

REACTIONS (1)
  - Cardiac pacemaker insertion [Unknown]
